FAERS Safety Report 14029541 (Version 1)
Quarter: 2017Q4

REPORT INFORMATION
  Report Type: Spontaneous
  Country: US (occurrence: US)
  Receive Date: 20171002
  Receipt Date: 20171002
  Transmission Date: 20180321
  Serious: Yes (Hospitalization)
  Sender: FDA-Public Use
  Company Number: None

PATIENT
  Age: 65 Year
  Sex: Male
  Weight: 90 kg

DRUGS (1)
  1. COLGATE TOTAL ADVANCED CLEAN [Suspect]
     Active Substance: SODIUM FLUORIDE\TRICLOSAN
     Indication: GINGIVITIS
     Dates: start: 19981115, end: 20140715

REACTIONS (3)
  - Tongue neoplasm malignant stage unspecified [None]
  - Lymphadenopathy [None]
  - Glossodynia [None]

NARRATIVE: CASE EVENT DATE: 20000801
